FAERS Safety Report 5139494-5 (Version None)
Quarter: 2006Q4

REPORT INFORMATION
  Report Type: 
  Country: None (occurrence: None)
  Receive Date: 20061025
  Receipt Date: 20061025
  Transmission Date: 20070319
  Serious: Yes (Hospitalization)
  Sender: FDA-Public Use
  Company Number: None

PATIENT
  Age: 61 Year
  Sex: Male
  Weight: 57.6068 kg

DRUGS (2)
  1. VANCOMYCIN [Suspect]
     Dosage: 1GM  IV  Q 12 HR.
     Route: 042
     Dates: start: 20060801
  2. PIPERACILLIN AND TAZOBACTAM [Suspect]
     Dosage: 3/0.375 GM  Q 6 HR  IV
     Route: 042
     Dates: start: 20060726

REACTIONS (2)
  - CLOSTRIDIAL INFECTION [None]
  - COLITIS [None]
